FAERS Safety Report 10649363 (Version 4)
Quarter: 2020Q1

REPORT INFORMATION
  Report Type: Spontaneous
  Country: US (occurrence: US)
  Receive Date: 20141212
  Receipt Date: 20200210
  Transmission Date: 20200409
  Serious: No
  Sender: FDA-Public Use
  Company Number: US-PFIZER INC-2014302511

PATIENT
  Age: 54 Year
  Sex: Female

DRUGS (2)
  1. GABAPENTIN. [Concomitant]
     Active Substance: GABAPENTIN
     Dosage: 900 MG, UNK
  2. LYRICA [Suspect]
     Active Substance: PREGABALIN
     Indication: SCIATICA
     Dosage: 300 MG, 2X/DAY (300 MG X2 PER DAY (A.M/P.M.))

REACTIONS (6)
  - Insomnia [Unknown]
  - Hyperhidrosis [Unknown]
  - Decreased activity [Unknown]
  - Palpitations [Unknown]
  - Sensory disturbance [Unknown]
  - Sciatica [Unknown]
